FAERS Safety Report 6441148-X (Version None)
Quarter: 2009Q4

REPORT INFORMATION
  Report Type: 
  Country: None (occurrence: None)
  Receive Date: 20091116
  Receipt Date: 20091109
  Transmission Date: 20100525
  Serious: Yes (Hospitalization)
  Sender: FDA-Public Use
  Company Number: US-BAYER-200614109BWH

PATIENT
  Age: 66 Year
  Sex: Male
  Weight: 98 kg

DRUGS (9)
  1. NEXAVAR [Suspect]
     Indication: RENAL CANCER METASTATIC
     Dosage: TOTAL DAILY DOSE: 800 MG  UNIT DOSE: 200 MG
     Route: 048
     Dates: start: 20060531, end: 20060613
  2. NEXAVAR [Suspect]
     Dosage: TOTAL DAILY DOSE: 400 MG  UNIT DOSE: 200 MG
     Route: 048
     Dates: start: 20060711, end: 20060731
  3. ALLOPURINOL [Suspect]
     Indication: RASH
  4. BACTRIM [Suspect]
     Indication: RASH
  5. ASPIRIN [Concomitant]
     Dosage: TOTAL DAILY DOSE: 325 MG
  6. INHALER (NOS) [Concomitant]
  7. ALEVE [Concomitant]
     Dosage: TOTAL DAILY DOSE: 1000 MG
  8. ANTIOXIDANT PACK (NOS) [Concomitant]
  9. SUTENT [Concomitant]
     Dosage: TOOK FOR 2 YEARS

REACTIONS (23)
  - ALOPECIA [None]
  - BLOOD URIC ACID INCREASED [None]
  - CHOLELITHIASIS [None]
  - CHONDROCALCINOSIS PYROPHOSPHATE [None]
  - DRY MOUTH [None]
  - DYSGEUSIA [None]
  - EPIGASTRIC DISCOMFORT [None]
  - ERYTHEMA [None]
  - EXCORIATION [None]
  - FATIGUE [None]
  - GAIT DISTURBANCE [None]
  - HAIR GROWTH ABNORMAL [None]
  - HAIR TEXTURE ABNORMAL [None]
  - HEPATIC STEATOSIS [None]
  - NEUROPATHY PERIPHERAL [None]
  - PAIN IN EXTREMITY [None]
  - PRURITUS [None]
  - PYREXIA [None]
  - RASH ERYTHEMATOUS [None]
  - RASH GENERALISED [None]
  - RENAL MASS [None]
  - SKIN DISCOLOURATION [None]
  - TEMPERATURE REGULATION DISORDER [None]
